FAERS Safety Report 5127784-1 (Version None)
Quarter: 2006Q4

REPORT INFORMATION
  Report Type: 
  Country: None (occurrence: None)
  Receive Date: 20061016
  Receipt Date: 20060717
  Transmission Date: 20070319
  Serious: Yes (Other)
  Sender: FDA-Public Use
  Company Number: DE-ROCHE-455656

PATIENT
  Age: 49 Year
  Sex: Female
  Weight: 71 kg

DRUGS (1)
  1. RIVOTRIL [Suspect]
     Indication: HAEMANGIOMA
     Route: 048

REACTIONS (1)
  - CHRONIC LYMPHOCYTIC LEUKAEMIA [None]
